FAERS Safety Report 23129218 (Version 1)
Quarter: 2023Q4

REPORT INFORMATION
  Report Type: Spontaneous
  Country: US (occurrence: None)
  Receive Date: 20231031
  Receipt Date: 20231031
  Transmission Date: 20240109
  Serious: Yes (Hospitalization)
  Sender: FDA-Public Use
  Company Number: None

PATIENT
  Age: 72 Year
  Sex: Female
  Weight: 82 kg

DRUGS (3)
  1. FLUOROURACIL [Suspect]
     Active Substance: FLUOROURACIL
     Dates: end: 20231009
  2. LEUCOVORIN CALCIUM [Suspect]
     Active Substance: LEUCOVORIN CALCIUM
     Dates: end: 20231009
  3. ELOXATIN [Suspect]
     Active Substance: OXALIPLATIN
     Dates: end: 20231009

REACTIONS (5)
  - Pericardial effusion [None]
  - Bone pain [None]
  - Insomnia [None]
  - Nasopharyngitis [None]
  - Feeling abnormal [None]

NARRATIVE: CASE EVENT DATE: 20231023
